FAERS Safety Report 10055266 (Version 3)
Quarter: 2014Q2

REPORT INFORMATION
  Report Type: Spontaneous
  Country: US (occurrence: US)
  Receive Date: 20140403
  Receipt Date: 20140613
  Transmission Date: 20141212
  Serious: No
  Sender: FDA-Public Use
  Company Number: US-009507513-1403USA011971

PATIENT
  Age: 30 Year
  Sex: Female
  Weight: 65.6 kg

DRUGS (2)
  1. NEXPLANON [Suspect]
     Dosage: 1 ROD/THREE YEARS
     Route: 059
     Dates: start: 20140325
  2. NEXPLANON [Suspect]
     Dosage: UNK

REACTIONS (4)
  - Complication of device insertion [Recovered/Resolved]
  - Product quality issue [Unknown]
  - No adverse event [Unknown]
  - Device difficult to use [Recovered/Resolved]
